FAERS Safety Report 15117541 (Version 2)
Quarter: 2018Q3

REPORT INFORMATION
  Report Type: Spontaneous
  Country: JP (occurrence: JP)
  Receive Date: 20180706
  Receipt Date: 20180711
  Transmission Date: 20181010
  Serious: Yes (Other)
  Sender: FDA-Public Use
  Company Number: JP-PFIZER INC-2018272319

PATIENT
  Age: 69 Year
  Sex: Male

DRUGS (4)
  1. MEROPENEM. [Suspect]
     Active Substance: MEROPENEM
     Indication: PYELONEPHRITIS
     Dosage: 1 G, 2X/DAY, (EVERY 12 H)
     Route: 042
  2. NAFTOPIDIL [Concomitant]
     Active Substance: NAFTOPIDIL
     Indication: BENIGN PROSTATIC HYPERPLASIA
     Dosage: UNK
  3. PREDNISOLONE. [Suspect]
     Active Substance: PREDNISOLONE
     Indication: STILL^S DISEASE
     Dosage: 10 MG, 1X/DAY
     Route: 048
  4. PIPERACILLIN/TAZOBACTAM [Suspect]
     Active Substance: PIPERACILLIN SODIUM\TAZOBACTAM SODIUM
     Indication: PYELONEPHRITIS
     Dosage: 4.5 G, 3X/DAY, (EVERY 8H)
     Route: 042

REACTIONS (11)
  - Enterococcus test positive [None]
  - Urethral obstruction [Recovered/Resolved]
  - Bladder mass [None]
  - Acute kidney injury [None]
  - Bacterial pyelonephritis [None]
  - Type 2 diabetes mellitus [None]
  - Dysuria [None]
  - Urinary tract infection fungal [Recovered/Resolved]
  - Candida infection [Recovered/Resolved]
  - Benign prostatic hyperplasia [None]
  - Urinary retention [Recovered/Resolved]
